FAERS Safety Report 11376895 (Version 1)
Quarter: 2015Q3

REPORT INFORMATION
  Report Type: Spontaneous
  Country: US (occurrence: US)
  Receive Date: 20150813
  Receipt Date: 20150813
  Transmission Date: 20151125
  Serious: No
  Sender: FDA-Public Use
  Company Number: US-TARO-2014TAR00529

PATIENT
  Age: 89 Year
  Sex: Male
  Weight: 64.85 kg

DRUGS (2)
  1. DESONIDE CREAM USP 0.05% [Suspect]
     Active Substance: DESONIDE
     Indication: PRURITUS
     Dosage: UNK UNK, AS NEEDED
     Route: 061
     Dates: start: 201410
  2. SYNTHROID [Concomitant]
     Active Substance: LEVOTHYROXINE SODIUM
     Dosage: UNK
     Dates: start: 1984

REACTIONS (1)
  - Drug effect incomplete [Not Recovered/Not Resolved]

NARRATIVE: CASE EVENT DATE: 201410
